FAERS Safety Report 17821369 (Version 1)
Quarter: 2020Q2

REPORT INFORMATION
  Report Type: Spontaneous
  Country: IT (occurrence: IT)
  Receive Date: 20200525
  Receipt Date: 20200525
  Transmission Date: 20200714
  Serious: Yes (Other)
  Sender: FDA-Public Use
  Company Number: IT-AMGEN-ITASP2020081716

PATIENT

DRUGS (3)
  1. NEULASTA [Suspect]
     Active Substance: PEGFILGRASTIM
     Indication: HAEMATOPOIETIC STEM CELL MOBILISATION
     Dosage: 100 MICROGRAM/KILOGRAM
     Route: 058
  2. FILGRASTIM [Suspect]
     Active Substance: FILGRASTIM
     Indication: HAEMATOPOIETIC STEM CELL MOBILISATION
     Dosage: 5 MILLIGRAM/KILOGRAM
     Route: 058
  3. COTRIMOXAZOLE [Concomitant]
     Active Substance: SULFAMETHOXAZOLE\TRIMETHOPRIM
     Indication: PROPHYLAXIS

REACTIONS (9)
  - Neutropenia [Unknown]
  - Pyrexia [Recovered/Resolved]
  - Pain in jaw [Unknown]
  - Arthralgia [Unknown]
  - Drug ineffective [Unknown]
  - Bone pain [Unknown]
  - White blood cell count increased [Unknown]
  - Fungaemia [Unknown]
  - Febrile neutropenia [Unknown]
